FAERS Safety Report 25773506 (Version 1)
Quarter: 2025Q3

REPORT INFORMATION
  Report Type: Spontaneous
  Country: US (occurrence: None)
  Receive Date: 20250906
  Receipt Date: 20250906
  Transmission Date: 20251020
  Serious: Yes (Death)
  Sender: FDA-CTU
  Company Number: None

PATIENT
  Age: 49 Year
  Sex: Male

DRUGS (1)
  1. BRAFTOVI [Suspect]
     Active Substance: ENCORAFENIB
     Dosage: OTHER QUANTITY : BRAFTOVI: 450MG; MEKTOVI: 45MG;?FREQUENCY : DAILY;?
     Route: 048

REACTIONS (1)
  - Death [None]
